FAERS Safety Report 20729213 (Version 4)
Quarter: 2022Q3

REPORT INFORMATION
  Report Type: Report from Study
  Country: US (occurrence: US)
  Receive Date: 20220420
  Receipt Date: 20220729
  Transmission Date: 20221027
  Serious: Yes (Hospitalization)
  Sender: FDA-Public Use
  Company Number: US-NOVARTISPH-NVSC2021US057591

PATIENT
  Age: 62 Year
  Sex: Male
  Weight: 70.9 kg

DRUGS (47)
  1. ISCALIMAB [Suspect]
     Active Substance: ISCALIMAB
     Indication: Liver transplant
     Dosage: 1884 MG, ONCE
     Route: 042
     Dates: start: 20200605
  2. ISCALIMAB [Suspect]
     Active Substance: ISCALIMAB
     Dosage: 300 MG, Q2W (ONCE IN 2 WEEKS)
     Route: 058
     Dates: start: 20200625
  3. TACROLIMUS [Suspect]
     Active Substance: TACROLIMUS
     Indication: Liver transplant
     Dosage: 4 MG, QD (DAILY)
     Route: 048
     Dates: start: 20200605
  4. CALCIUM GLUCONATE [Concomitant]
     Active Substance: CALCIUM GLUCONATE
     Indication: Vitamin D deficiency
     Dosage: UNK
     Route: 065
     Dates: start: 20210316, end: 20210316
  5. ALBUTEROL [Concomitant]
     Active Substance: ALBUTEROL
     Indication: Obstructive airways disorder
     Dosage: UNK
     Route: 065
     Dates: start: 201904
  6. MIRALAX [Concomitant]
     Active Substance: POLYETHYLENE GLYCOL 3350
     Indication: Constipation prophylaxis
     Dosage: UNK
     Route: 065
     Dates: start: 20200601
  7. CALCIUM\VITAMIN D [Concomitant]
     Active Substance: CALCIUM\VITAMIN D
     Indication: Vitamin D deficiency
     Dosage: UNK
     Route: 065
     Dates: start: 20200609
  8. PREDNISONE [Concomitant]
     Active Substance: PREDNISONE
     Indication: Prophylaxis against transplant rejection
     Dosage: UNK
     Route: 065
     Dates: start: 20200701
  9. TRAZODONE [Concomitant]
     Active Substance: TRAZODONE HYDROCHLORIDE
     Indication: Depression
     Dosage: UNK
     Route: 065
     Dates: start: 20201203
  10. DILTIAZEM [Concomitant]
     Active Substance: DILTIAZEM
     Indication: Prophylaxis
     Dosage: UNK
     Route: 065
     Dates: start: 20210107, end: 20210321
  11. ZOLOFT [Concomitant]
     Active Substance: SERTRALINE HYDROCHLORIDE
     Indication: Depression
     Dosage: UNK
     Route: 065
     Dates: start: 20210225, end: 20210505
  12. ZOLOFT [Concomitant]
     Active Substance: SERTRALINE HYDROCHLORIDE
     Dosage: UNK
     Route: 065
     Dates: start: 20210317, end: 20210322
  13. RISPERIDONE [Concomitant]
     Active Substance: RISPERIDONE
     Indication: Prophylaxis
     Dosage: UNK
     Route: 065
     Dates: start: 201906
  14. ACETAMINOPHEN [Concomitant]
     Active Substance: ACETAMINOPHEN
     Indication: Abdominal pain
     Dosage: UNK
     Route: 065
     Dates: start: 20201015, end: 20210325
  15. BISACODYL [Concomitant]
     Active Substance: BISACODYL
     Indication: Constipation prophylaxis
     Dosage: UNK
     Route: 065
     Dates: start: 20210313, end: 20210313
  16. BISACODYL [Concomitant]
     Active Substance: BISACODYL
     Dosage: UNK
     Route: 065
     Dates: start: 20210318, end: 20210325
  17. ROCEPHIN [Concomitant]
     Active Substance: CEFTRIAXONE SODIUM
     Indication: Infection prophylaxis
     Dosage: UNK
     Route: 065
     Dates: start: 20210316, end: 20210316
  18. GABAPENTIN [Concomitant]
     Active Substance: GABAPENTIN
     Indication: Procedural pain
     Dosage: UNK
     Route: 065
     Dates: start: 20200530
  19. NPH INSULIN [Concomitant]
     Active Substance: INSULIN BEEF
     Indication: Hyperglycaemia
     Dosage: 100 UNIT/ML
     Route: 065
     Dates: start: 20200609
  20. K PHOS NEUTRAL [Concomitant]
     Active Substance: POTASSIUM PHOSPHATE, MONOBASIC\SODIUM PHOSPHATE, DIBASIC, ANHYDROUS\SODIUM PHOSPHATE, MONOBASIC, MON
     Indication: Hypophosphataemia
     Dosage: UNK
     Route: 065
     Dates: start: 20210321, end: 20210321
  21. ROBAXIN [Concomitant]
     Active Substance: METHOCARBAMOL
     Indication: Incisional hernia
     Dosage: UNK
     Route: 065
     Dates: start: 20210310, end: 20210311
  22. SYMBICORT [Concomitant]
     Active Substance: BUDESONIDE\FORMOTEROL FUMARATE DIHYDRATE
     Indication: Obstructive airways disorder
     Dosage: UNK
     Route: 065
     Dates: start: 201904
  23. OSCAL D [Concomitant]
     Active Substance: CALCIUM CARBONATE\CHOLECALCIFEROL
     Indication: Vitamin D deficiency
     Dosage: UNK
     Route: 065
     Dates: start: 20200606
  24. METRONIDAZOLE [Concomitant]
     Active Substance: METRONIDAZOLE
     Indication: Infection prophylaxis
     Dosage: UNK
     Route: 065
     Dates: start: 20210310, end: 20210311
  25. AMPICILLIN [Concomitant]
     Active Substance: AMPICILLIN
     Indication: Infection prophylaxis
     Dosage: UNK
     Route: 065
     Dates: start: 20210315, end: 20210315
  26. AMPICILLIN [Concomitant]
     Active Substance: AMPICILLIN
     Dosage: UNK
     Route: 065
     Dates: start: 20210316, end: 20210316
  27. AMPICILLIN [Concomitant]
     Active Substance: AMPICILLIN
     Dosage: UNK
     Route: 065
     Dates: start: 20210317, end: 20210317
  28. FAMOTIDINE [Concomitant]
     Active Substance: FAMOTIDINE
     Indication: Prophylaxis against gastrointestinal ulcer
     Dosage: UNK
     Route: 065
     Dates: start: 20200529
  29. FERROUS SULFATE [Concomitant]
     Active Substance: FERROUS SULFATE
     Indication: Anaemia
     Dosage: UNK
     Route: 065
     Dates: start: 20200621
  30. FERROUS SULFATE [Concomitant]
     Active Substance: FERROUS SULFATE
     Dosage: UNK
     Route: 065
     Dates: start: 20201201
  31. ROPINIROLE [Concomitant]
     Active Substance: ROPINIROLE
     Indication: Restless legs syndrome
     Dosage: UNK
     Route: 065
     Dates: start: 20210318, end: 20210326
  32. ROPINIROLE [Concomitant]
     Active Substance: ROPINIROLE
     Dosage: UNK
     Route: 065
     Dates: start: 20210313, end: 20210314
  33. CEFTRIAXONE [Concomitant]
     Active Substance: CEFTRIAXONE
     Indication: Infection prophylaxis
     Dosage: UNK
     Route: 065
     Dates: start: 20210316, end: 20210316
  34. LINEZOLID [Concomitant]
     Active Substance: LINEZOLID
     Indication: Candida infection
     Dosage: UNK
     Route: 065
     Dates: start: 20210323, end: 20210327
  35. POLYETHYLENE GLYCOL [Concomitant]
     Active Substance: POLYETHYLENE GLYCOL
     Indication: Liver transplant
     Dosage: UNK
     Route: 065
     Dates: start: 20210313, end: 20210314
  36. LOPRESSOR [Concomitant]
     Active Substance: METOPROLOL TARTRATE
     Indication: Ventricular tachycardia
     Dosage: UNK
     Route: 065
     Dates: start: 20210316, end: 20210316
  37. LOPRESSOR [Concomitant]
     Active Substance: METOPROLOL TARTRATE
     Indication: Prophylaxis
     Dosage: UNK
     Route: 065
     Dates: start: 20210321
  38. LOPRESSOR [Concomitant]
     Active Substance: METOPROLOL TARTRATE
     Indication: Atrial fibrillation
  39. POTASSIUM CHLORIDE [Concomitant]
     Active Substance: POTASSIUM CHLORIDE
     Indication: Hypokalaemia
     Dosage: UNK
     Route: 065
     Dates: start: 20210318, end: 20210327
  40. HEPARIN [Concomitant]
     Active Substance: HEPARIN SODIUM
     Indication: Thrombosis prophylaxis
     Dosage: UNK
     Route: 065
     Dates: start: 20210313, end: 20210326
  41. LASIX [Concomitant]
     Active Substance: FUROSEMIDE
     Indication: Liver transplant
     Dosage: UNK
     Route: 065
     Dates: start: 20210313, end: 20210314
  42. LASIX [Concomitant]
     Active Substance: FUROSEMIDE
     Dosage: UNK
     Route: 065
     Dates: start: 20210319, end: 20210322
  43. ZOLPIDEM [Concomitant]
     Active Substance: ZOLPIDEM TARTRATE
     Indication: Insomnia
     Dosage: UNK
     Route: 065
     Dates: start: 20210225
  44. CIPROFLOXACIN [Concomitant]
     Active Substance: CIPROFLOXACIN
     Indication: Infection prophylaxis
     Dosage: UNK
     Route: 065
     Dates: start: 20210310, end: 20210511
  45. DOCUSATE SODIUM [Concomitant]
     Active Substance: DOCUSATE SODIUM
     Indication: Constipation prophylaxis
     Dosage: UNK
     Route: 065
     Dates: start: 20200609
  46. MAGNESIUM SULFATE [Concomitant]
     Active Substance: MAGNESIUM SULFATE
     Indication: Prophylaxis
     Dosage: UNK
     Route: 065
     Dates: start: 20210316, end: 20210316
  47. MAGNESIUM SULFATE [Concomitant]
     Active Substance: MAGNESIUM SULFATE
     Dosage: UNK
     Route: 065
     Dates: start: 20210321, end: 20210326

REACTIONS (4)
  - Enterococcal infection [Recovered/Resolved]
  - Abdominal pain [Recovered/Resolved]
  - Incisional hernia [Recovered/Resolved]
  - Ileus [Recovered/Resolved]

NARRATIVE: CASE EVENT DATE: 20210310
